FAERS Safety Report 8876754 (Version 1)
Quarter: 2012Q4

REPORT INFORMATION
  Report Type: Spontaneous
  Country: US (occurrence: None)
  Receive Date: 20121024
  Receipt Date: 20121024
  Transmission Date: 20130627
  Serious: Yes (Other)
  Sender: FDA-Public Use
  Company Number: JPI-P-025833

PATIENT
  Age: 64 Year
  Sex: Male
  Weight: 123.83 kg

DRUGS (4)
  1. XYREM (500 MILLIGRAM/MILLILITERS, SOLUTION) (SODIUM OXYBATE) [Suspect]
     Indication: NARCOLEPSY
     Route: 048
     Dates: start: 20120825, end: 2012
  2. XYREM (500 MILLIGRAM/MILLILITERS, SOLUTION) (SODIUM OXYBATE) [Suspect]
     Indication: NARCOLEPSY
     Dosage: (4.5 gm,2 in 1 D)
     Route: 048
     Dates: end: 2012
  3. LEVOTHYROXINE SODIUM [Concomitant]
  4. MULTIPLE UNSPECIFIED MEDICATIONS [Concomitant]

REACTIONS (2)
  - Restless legs syndrome [None]
  - Petit mal epilepsy [None]
